FAERS Safety Report 14283929 (Version 1)
Quarter: 2017Q4

REPORT INFORMATION
  Report Type: Spontaneous
  Country: US (occurrence: US)
  Receive Date: 20171213
  Receipt Date: 20171213
  Transmission Date: 20180321
  Serious: Yes (Hospitalization)
  Sender: FDA-Public Use
  Company Number: None

PATIENT
  Age: 7 Month
  Sex: Female

DRUGS (4)
  1. MUPIROCIN. [Concomitant]
     Active Substance: MUPIROCIN
  2. RANITIDINE. [Concomitant]
     Active Substance: RANITIDINE
  3. BUMETANIDE. [Concomitant]
     Active Substance: BUMETANIDE
  4. REVATIO [Suspect]
     Active Substance: SILDENAFIL CITRATE
     Indication: PULMONARY HYPERTENSION
     Dosage: EVERY 6 HOURS; VIA J-TUBE?
     Dates: start: 20170817

REACTIONS (1)
  - Respiratory distress [None]

NARRATIVE: CASE EVENT DATE: 20171126
